FAERS Safety Report 8770322 (Version 1)
Quarter: 2012Q4

REPORT INFORMATION
  Report Type: 
  Country: BR (occurrence: BR)
  Receive Date: 20120906
  Receipt Date: 20120906
  Transmission Date: 20130627
  Serious: Yes (Death, Hospitalization, Other)
  Sender: FDA-Public Use
  Company Number: BR-PFIZER INC-2012216387

PATIENT
  Age: 97 Year
  Sex: Male
  Weight: 70 kg

DRUGS (1)
  1. XALATAN [Suspect]
     Indication: GLAUCOMA
     Dosage: UNK
     Route: 047
     Dates: start: 2004

REACTIONS (4)
  - Respiratory tract infection [Fatal]
  - Nosocomial infection [Fatal]
  - Influenza [Unknown]
  - Blindness [Unknown]
